FAERS Safety Report 12190150 (Version 1)
Quarter: 2016Q1

REPORT INFORMATION
  Report Type: Spontaneous
  Country: US (occurrence: None)
  Receive Date: 20160317
  Receipt Date: 20160317
  Transmission Date: 20160526
  Serious: No
  Sender: FDA-Public Use
  Company Number: None

PATIENT
  Age: 18 Year
  Sex: Female
  Weight: 54.43 kg

DRUGS (3)
  1. LORYNA [Concomitant]
     Active Substance: DROSPIRENONE\ETHINYL ESTRADIOL
  2. DAILY VITAMIN [Concomitant]
     Active Substance: VITAMINS
  3. AZITHROMYCIN 250 MG [Suspect]
     Active Substance: AZITHROMYCIN ANHYDROUS
     Indication: BRONCHITIS
     Dosage: 6 PILLS ONCE DAILY TAKEN BY MOUTH
     Route: 048
     Dates: start: 20160307, end: 20160311

REACTIONS (4)
  - Feeling abnormal [None]
  - Nausea [None]
  - Drug interaction [None]
  - Vaginal haemorrhage [None]

NARRATIVE: CASE EVENT DATE: 20160311
